FAERS Safety Report 14539746 (Version 26)
Quarter: 2023Q4

REPORT INFORMATION
  Report Type: Spontaneous
  Country: DE (occurrence: DE)
  Receive Date: 20180216
  Receipt Date: 20231127
  Transmission Date: 20240110
  Serious: Yes (Hospitalization, Other)
  Sender: FDA-Public Use
  Company Number: None

PATIENT
  Age: 75 Year
  Sex: Male
  Weight: 81 kg

DRUGS (59)
  1. QUETIAPINE [Suspect]
     Active Substance: QUETIAPINE
     Indication: Product used for unknown indication
     Dosage: 25 MILLIGRAM, ONCE A DAY (25 MG, QD)
     Route: 065
  2. ENOXAPARIN SODIUM [Suspect]
     Active Substance: ENOXAPARIN SODIUM
     Indication: Venous thrombosis limb
     Dosage: UNK
     Route: 065
     Dates: start: 201507
  3. CHOLECALCIFEROL [Suspect]
     Active Substance: CHOLECALCIFEROL
     Indication: Osteoporosis
     Dosage: 1000 INTERNATIONAL UNIT, UNK
     Route: 048
     Dates: start: 201204
  4. DENOSUMAB [Suspect]
     Active Substance: DENOSUMAB
     Indication: Osteoporosis
     Dosage: 60 MILLIGRAM, EVERY 6 MONTHS
     Route: 058
     Dates: start: 201405
  5. NADROPARIN CALCIUM [Suspect]
     Active Substance: NADROPARIN CALCIUM
     Indication: Venous thrombosis limb
     Dosage: UNK
     Route: 065
     Dates: start: 201507
  6. NADROPARIN CALCIUM [Suspect]
     Active Substance: NADROPARIN CALCIUM
     Indication: Venous thrombosis limb
     Dosage: UNK
     Route: 065
  7. PROLIA [Suspect]
     Active Substance: DENOSUMAB
     Indication: Osteoporosis
     Dosage: 60 MILLIGRAM, EVERY 6 MONTHS
     Route: 058
     Dates: start: 201405
  8. TOCILIZUMAB [Suspect]
     Active Substance: TOCILIZUMAB
     Indication: Myalgia
     Dosage: 162 MILLIGRAM, ONCE A DAY
     Route: 058
  9. TOCILIZUMAB [Suspect]
     Active Substance: TOCILIZUMAB
     Indication: Vasculitis
     Dosage: 162 MILLIGRAM, 14 DAYS
     Route: 058
     Dates: start: 20180414
  10. TOCILIZUMAB [Suspect]
     Active Substance: TOCILIZUMAB
     Indication: Rheumatoid arthritis
     Dosage: 324 MILLIGRAM, ONCE A DAY
     Route: 058
  11. TOCILIZUMAB [Suspect]
     Active Substance: TOCILIZUMAB
     Indication: Giant cell arteritis
     Dosage: 162 MILLIGRAM, 18 DAY
     Route: 058
  12. TOCILIZUMAB [Suspect]
     Active Substance: TOCILIZUMAB
     Dosage: 324 MILLIGRAM, ONCE A DAY
     Route: 058
     Dates: start: 20140601, end: 201506
  13. TOCILIZUMAB [Suspect]
     Active Substance: TOCILIZUMAB
     Dosage: 324 MILLIGRAM, ONCE A DAY (162 MG, BID)
     Route: 058
     Dates: start: 201506
  14. TOCILIZUMAB [Suspect]
     Active Substance: TOCILIZUMAB
     Dosage: 162 MILLIGRAM, 0.5 DAY
     Route: 058
     Dates: start: 201506
  15. TOCILIZUMAB [Suspect]
     Active Substance: TOCILIZUMAB
     Dosage: 324 MILLIGRAM, 12 DAY
     Route: 058
     Dates: start: 20150706, end: 20171025
  16. TOCILIZUMAB [Suspect]
     Active Substance: TOCILIZUMAB
     Dosage: 162 MILLIGRAM, EVERY 14 DAYS
     Route: 058
     Dates: start: 201704, end: 20171025
  17. TOCILIZUMAB [Suspect]
     Active Substance: TOCILIZUMAB
     Dosage: 162 MILLIGRAM, ONCE A DAY
     Route: 058
     Dates: start: 20180131
  18. TOCILIZUMAB [Suspect]
     Active Substance: TOCILIZUMAB
     Dosage: 162 MILLIGRAM, ONCE A DAY
     Route: 058
     Dates: start: 20180414
  19. TOCILIZUMAB [Suspect]
     Active Substance: TOCILIZUMAB
     Dosage: 162 MILLIGRAM ,10 DAYS
     Route: 058
     Dates: start: 20180414
  20. TOCILIZUMAB [Suspect]
     Active Substance: TOCILIZUMAB
     Dosage: 162 MILLIGRAM, 3 WEEK
     Route: 058
     Dates: start: 201811
  21. TOCILIZUMAB [Suspect]
     Active Substance: TOCILIZUMAB
     Dosage: 162 MILLIGRAM, ONCE A DAY (DAILY DOSE: 162 MG MILLGRAM(S) EVERY WEEKS)
     Route: 058
     Dates: start: 20190227, end: 20190327
  22. TOCILIZUMAB [Suspect]
     Active Substance: TOCILIZUMAB
     Dosage: 162 MILLIGRAM, TWO TIMES A DAY
     Route: 058
     Dates: start: 20190328, end: 20190404
  23. TOCILIZUMAB [Suspect]
     Active Substance: TOCILIZUMAB
     Dosage: 162 MILLIGRAM, 12 DAYS
     Route: 058
     Dates: start: 201904
  24. TOCILIZUMAB [Suspect]
     Active Substance: TOCILIZUMAB
     Dosage: 162 MILLIGRAM, EVERY WEEK
     Route: 058
     Dates: start: 202005
  25. TOCILIZUMAB [Suspect]
     Active Substance: TOCILIZUMAB
     Dosage: 162 MILLIGRAM, 9 DAY
     Route: 058
     Dates: start: 20190328, end: 20190404
  26. TOCILIZUMAB [Suspect]
     Active Substance: TOCILIZUMAB
     Dosage: 162 MILLIGRAM, 9 DAY
     Route: 058
     Dates: start: 202008
  27. TOCILIZUMAB [Suspect]
     Active Substance: TOCILIZUMAB
     Dosage: 162 MILLIGRAM, 0.5 DAY
     Route: 058
     Dates: start: 20140601, end: 201506
  28. TOCILIZUMAB [Suspect]
     Active Substance: TOCILIZUMAB
     Dosage: 162 MILLIGRAM, 14 DAY
     Route: 058
     Dates: start: 20150607
  29. TOCILIZUMAB [Suspect]
     Active Substance: TOCILIZUMAB
     Dosage: 162 MILLIGRAM, 10 DAY
     Route: 058
     Dates: start: 202011
  30. TOCILIZUMAB [Suspect]
     Active Substance: TOCILIZUMAB
     Dosage: 162 MILLIGRAM, 7 DAY
     Route: 058
     Dates: start: 20190227, end: 20190327
  31. TOCILIZUMAB [Suspect]
     Active Substance: TOCILIZUMAB
     Indication: Vasculitis
     Dosage: 324 MILLIGRAM, ONCE A DAY (162 MG, BID)
     Route: 058
     Dates: start: 20180131
  32. TOCILIZUMAB [Suspect]
     Active Substance: TOCILIZUMAB
     Indication: Rheumatoid arthritis
     Dosage: 162 MILLIGRAM, EVERY WEEK
     Route: 058
     Dates: start: 20140601, end: 201506
  33. TOCILIZUMAB [Suspect]
     Active Substance: TOCILIZUMAB
     Indication: Myalgia
     Dosage: 162 MILLIGRAM, ONCE A DAY
     Route: 058
     Dates: end: 201506
  34. TOCILIZUMAB [Suspect]
     Active Substance: TOCILIZUMAB
     Dosage: 162 MILLIGRAM, TWO TIMES A DAY (BID)
     Route: 058
  35. TOCILIZUMAB [Suspect]
     Active Substance: TOCILIZUMAB
     Dosage: 162 MILLIGRAM, TWO TIMES A DAY (BID)
     Route: 058
  36. TOCILIZUMAB [Suspect]
     Active Substance: TOCILIZUMAB
     Dosage: 162 MG, UNK, EVERY 10 DAYS
     Route: 058
  37. TOCILIZUMAB [Suspect]
     Active Substance: TOCILIZUMAB
     Dosage: 162 MILLIGRAM, ONCE A DAY
     Route: 058
  38. TOCILIZUMAB [Suspect]
     Active Substance: TOCILIZUMAB
     Dosage: 162 MG, EVERY 14 DAYS
     Route: 058
     Dates: start: 201704, end: 20171025
  39. TOCILIZUMAB [Suspect]
     Active Substance: TOCILIZUMAB
     Dosage: 162 MILLIGRAM, 3 WEEK
     Route: 058
     Dates: start: 201811
  40. TOCILIZUMAB [Suspect]
     Active Substance: TOCILIZUMAB
     Dosage: 162 MG, EVERY 14 DAYS
     Route: 058
     Dates: start: 20180414
  41. TOCILIZUMAB [Suspect]
     Active Substance: TOCILIZUMAB
     Dosage: 324 MILLIGRAM, EVERY 12 DAYS
     Route: 058
     Dates: start: 20150706, end: 20171025
  42. TOCILIZUMAB [Suspect]
     Active Substance: TOCILIZUMAB
     Dosage: 162 MILLIGRAM FOR 3 WEEK
     Route: 058
     Dates: start: 201811
  43. TOCILIZUMAB [Suspect]
     Active Substance: TOCILIZUMAB
     Dosage: 324 MILLIGRAM, ONCE A DAY (162 MG, UNK, EVERY 10 DAYS)
     Route: 058
     Dates: start: 20180414
  44. TOCILIZUMAB [Suspect]
     Active Substance: TOCILIZUMAB
     Dosage: 324 MILLIGRAM, ONCE A DAY (162 MG, UNK, EVERY 10 DAYS)
     Route: 058
     Dates: start: 20140601, end: 201506
  45. TOCILIZUMAB [Suspect]
     Active Substance: TOCILIZUMAB
     Dosage: 324 MILLIGRAM, ONCE A DAY
     Route: 058
  46. TOCILIZUMAB [Suspect]
     Active Substance: TOCILIZUMAB
     Dosage: 162 MILLIGRAM, FOR 7 DAYS
     Route: 058
     Dates: start: 20190227, end: 20190327
  47. TOCILIZUMAB [Suspect]
     Active Substance: TOCILIZUMAB
     Dosage: 162 MILLIGRAM, FOR 9 DAYS
     Route: 058
     Dates: start: 20190328, end: 20190404
  48. TOCILIZUMAB [Suspect]
     Active Substance: TOCILIZUMAB
     Dosage: 162 MILLIGRAM, ONCE A DAY
     Route: 058
     Dates: start: 20180131
  49. TOCILIZUMAB [Suspect]
     Active Substance: TOCILIZUMAB
     Dosage: 162 MILLIGRAM, TWO TIMES A DAY (BID)
     Route: 058
     Dates: start: 201904
  50. TOCILIZUMAB [Suspect]
     Active Substance: TOCILIZUMAB
     Dosage: 324 MILLIGRAM, ONCE A DAY
     Route: 058
     Dates: start: 201506
  51. TOCILIZUMAB [Suspect]
     Active Substance: TOCILIZUMAB
     Dosage: 648 MILLIGRAM
     Route: 058
     Dates: start: 20150706, end: 20171025
  52. AMLODIPINE BESYLATE [Concomitant]
     Active Substance: AMLODIPINE BESYLATE
     Indication: Product used for unknown indication
     Dosage: 2.5 MILLIGRAM, ONCE A DAY
     Route: 065
  53. AMLODIPINE BESYLATE [Concomitant]
     Active Substance: AMLODIPINE BESYLATE
     Dosage: 5 MILLIGRAM, ONCE A DAY
     Route: 065
  54. CORTISONE ACETATE [Concomitant]
     Active Substance: CORTISONE ACETATE
     Indication: Product used for unknown indication
     Dosage: 10 MILLIGRAM
     Route: 065
  55. ESCITALOPRAM [Concomitant]
     Active Substance: ESCITALOPRAM OXALATE
     Indication: Product used for unknown indication
     Dosage: 10 GTT DROPS, ONCE A DAY
     Route: 048
  56. ESCITALOPRAM [Concomitant]
     Active Substance: ESCITALOPRAM OXALATE
     Dosage: 8 GTT DROPS
     Route: 048
  57. ESCITALOPRAM [Concomitant]
     Active Substance: ESCITALOPRAM OXALATE
     Dosage: 5 GTT DROPS
     Route: 048
  58. LISINOPRIL [Concomitant]
     Active Substance: LISINOPRIL
     Indication: Product used for unknown indication
     Dosage: 20 MILLIGRAM, ONCE A DAY
     Route: 065
  59. PANTOPRAZOLE [Concomitant]
     Active Substance: PANTOPRAZOLE
     Indication: Product used for unknown indication
     Dosage: UNK
     Route: 065

REACTIONS (27)
  - Sleep disorder [Unknown]
  - Suture rupture [Recovered/Resolved]
  - Prostate cancer [Recovered/Resolved]
  - Soft tissue disorder [Recovered/Resolved]
  - Depression [Not Recovered/Not Resolved]
  - Lymphocele [Recovered/Resolved]
  - Erysipelas [Recovering/Resolving]
  - Venous thrombosis limb [Not Recovered/Not Resolved]
  - Fall [Unknown]
  - Sepsis [Recovering/Resolving]
  - Rash erythematous [Unknown]
  - Lymphoedema [Recovered/Resolved]
  - Hyperaesthesia [Unknown]
  - Platelet count decreased [Unknown]
  - Dysuria [Unknown]
  - Autoimmune disorder [Unknown]
  - Impaired healing [Recovered/Resolved]
  - Leukopenia [Recovered/Resolved]
  - Acetabulum fracture [Recovering/Resolving]
  - C-reactive protein increased [Recovered/Resolved]
  - Eye inflammation [Recovering/Resolving]
  - Bronchitis [Recovered/Resolved]
  - Wound dehiscence [Recovered/Resolved]
  - Angioedema [Recovered/Resolved]
  - Off label use [Unknown]
  - Inappropriate schedule of product administration [Unknown]
  - Product use in unapproved indication [Unknown]

NARRATIVE: CASE EVENT DATE: 20140701
